FAERS Safety Report 9030242 (Version 3)
Quarter: 2013Q1

REPORT INFORMATION
  Report Type: Spontaneous
  Country: US (occurrence: US)
  Receive Date: 20130122
  Receipt Date: 20130319
  Transmission Date: 20140127
  Serious: Yes (Other)
  Sender: FDA-Public Use
  Company Number: US-ALEXION PHARMACEUTICALS INC.-A201300023

PATIENT
  Sex: Female
  Weight: 92.06 kg

DRUGS (25)
  1. SOLIRIS 300MG [Suspect]
     Indication: HAEMOLYTIC URAEMIC SYNDROME
     Dosage: 900 MG, Q2W
     Route: 042
     Dates: start: 20120519, end: 20120608
  2. SOLIRIS 300MG [Suspect]
     Dosage: 1200 MG, Q2W
     Route: 042
     Dates: start: 20120615, end: 20120807
  3. SOLIRIS 300MG [Suspect]
     Dosage: 1200 MG Q3WKS
     Route: 042
     Dates: start: 20120821, end: 20130118
  4. SOLIRIS 300MG [Suspect]
     Dosage: 1200 MG Q3WKS
     Route: 042
     Dates: start: 20130208
  5. BENADRYL [Concomitant]
     Indication: PROPHYLAXIS
     Dosage: 25 MG, PRN
     Dates: start: 20120601
  6. FLEXERIL [Concomitant]
     Dosage: 10 MG, PRN QID
     Route: 048
     Dates: start: 20121002
  7. FOLIC ACID [Concomitant]
     Dosage: 1 MG, BID
     Route: 048
     Dates: start: 20120530
  8. ACETAMINOPHEN W/HYDROCODONE [Concomitant]
     Dosage: 10-325 MG, PRN EVERY 4 HOURS
     Route: 048
     Dates: start: 20120601
  9. MIRALAX [Concomitant]
     Dosage: UNK
     Route: 048
     Dates: start: 20121023
  10. PREDNISONE [Concomitant]
     Dosage: 30 MG, UNK
     Route: 048
     Dates: start: 20120530
  11. PREDNISONE [Concomitant]
     Dosage: 20 MG, UNK
     Route: 048
     Dates: start: 20120615
  12. PREDNISONE [Concomitant]
     Dosage: 5 MG, UNK
     Route: 048
     Dates: start: 20120629
  13. ZOLOFT [Concomitant]
     Dosage: 100 MG, QD
     Route: 048
     Dates: start: 20120601
  14. ACETAMINOPHEN [Concomitant]
     Dosage: 650 MG, PRN EVERY 6 HOURS
     Route: 048
     Dates: start: 20120606
  15. MULTIVITAMIN [Concomitant]
     Dosage: 1 DF, QD
     Route: 048
  16. FAMOTIDINE [Concomitant]
     Dosage: 20 MG, QD
     Route: 048
     Dates: start: 20120713
  17. LASIX [Concomitant]
     Dosage: 80 MG, TID
     Route: 048
     Dates: start: 20120606
  18. LYRICA [Concomitant]
     Dosage: 100 MG, QD HS
     Route: 048
     Dates: start: 20120827
  19. GENRX METOPROLOL [Concomitant]
     Dosage: 50 MG, BID
     Route: 048
     Dates: start: 201206
  20. NORVASC [Concomitant]
     Dosage: 5 MG, QD
     Route: 048
     Dates: start: 201206
  21. ACETAMINOPHEN W/OXYCODONE [Concomitant]
     Dosage: 5-325 MG, PRN
     Route: 048
     Dates: start: 201212
  22. POTASSIUM CHLORIDE [Concomitant]
     Dosage: 20 MEQ, QD
     Route: 048
     Dates: start: 20120606
  23. PROCHLORPERAZINE MALEATE [Concomitant]
     Dosage: 10 MG, PRN EVERY 6 HOURS
     Route: 048
     Dates: start: 201206
  24. VITAMIN D3 [Concomitant]
     Dosage: 1 DF, QW
     Route: 048
  25. AMBIEN [Concomitant]
     Dosage: 5 MG, PRN AT BEDTIME
     Route: 048

REACTIONS (4)
  - Intervertebral disc protrusion [Recovered/Resolved]
  - Spinal osteoarthritis [Unknown]
  - Spinal column stenosis [Unknown]
  - Intervertebral disc degeneration [Unknown]
